FAERS Safety Report 7365168-6 (Version None)
Quarter: 2011Q1

REPORT INFORMATION
  Report Type: 
  Country: None (occurrence: None)
  Receive Date: 20110321
  Receipt Date: 20110228
  Transmission Date: 20110831
  Serious: Yes (Hospitalization)
  Sender: FDA-Public Use
  Company Number: US-AMGEN-KDL331151

PATIENT
  Age: 54 Year
  Sex: Female

DRUGS (2)
  1. ENBREL [Suspect]
     Indication: PSORIASIS
     Dosage: 50 MG, 2 TIMES/WK
     Route: 058
     Dates: start: 20090128, end: 20090101
  2. ENBREL [Suspect]
     Indication: PSORIATIC ARTHROPATHY

REACTIONS (22)
  - NASAL CONGESTION [None]
  - EAR CONGESTION [None]
  - URINARY INCONTINENCE [None]
  - FATIGUE [None]
  - VOMITING [None]
  - FEELING ABNORMAL [None]
  - DIARRHOEA [None]
  - HEADACHE [None]
  - APHONIA [None]
  - THINKING ABNORMAL [None]
  - BRONCHITIS [None]
  - PSORIATIC ARTHROPATHY [None]
  - DRUG INEFFECTIVE [None]
  - PAIN IN JAW [None]
  - PHARYNGEAL OEDEMA [None]
  - CONTUSION [None]
  - SINUS CONGESTION [None]
  - OROPHARYNGEAL PAIN [None]
  - DYSPHAGIA [None]
  - MUSCLE TIGHTNESS [None]
  - MUSCLE SPASMS [None]
  - PAIN IN EXTREMITY [None]
